FAERS Safety Report 4491876-0 (Version None)
Quarter: 2004Q4

REPORT INFORMATION
  Report Type: 
  Country: None (occurrence: None)
  Receive Date: 20041028
  Receipt Date: 20041028
  Transmission Date: 20050328
  Serious: Yes (Life-Threatening)
  Sender: FDA-Public Use
  Company Number: None

PATIENT
  Age: 4 Year
  Sex: Female
  Weight: 10.5 kg

DRUGS (5)
  1. VINCRISTINE [Suspect]
     Indication: ACUTE LYMPHOCYTIC LEUKAEMIA
     Dosage: SEE IMAGE
     Dates: start: 20040916, end: 20041026
  2. CYTARABINE [Suspect]
     Indication: ACUTE LYMPHOCYTIC LEUKAEMIA
     Dosage: SEE IMAGE
     Dates: start: 20040916, end: 20041026
  3. METHOTREXATE [Suspect]
     Dosage: SEE IMAGE
  4. PEG ASPARAGINASE [Suspect]
     Dosage: SEE IMAGE
  5. DEXAMETHASONE [Concomitant]

REACTIONS (11)
  - ASPERGILLOSIS [None]
  - CELLULITIS [None]
  - COMPUTERISED TOMOGRAM ABNORMAL [None]
  - CONSTIPATION [None]
  - FEBRILE NEUTROPENIA [None]
  - FUNGAL INFECTION [None]
  - IMMUNOSUPPRESSION [None]
  - LUNG DISORDER [None]
  - LYMPHADENOPATHY MEDIASTINAL [None]
  - NODULE [None]
  - SUBCUTANEOUS ABSCESS [None]
